FAERS Safety Report 26095093 (Version 1)
Quarter: 2025Q4

REPORT INFORMATION
  Report Type: Spontaneous
  Country: CH (occurrence: CH)
  Receive Date: 20251127
  Receipt Date: 20251127
  Transmission Date: 20260117
  Serious: Yes (Hospitalization)
  Sender: ABBVIE
  Company Number: None

PATIENT
  Age: 37 Year
  Sex: Female

DRUGS (1)
  1. BOTOX [Suspect]
     Active Substance: ONABOTULINUMTOXINA
     Indication: Product used for unknown indication
     Dosage: TIME INTERVAL: AS NECESSARY
     Route: 065
     Dates: start: 20250904, end: 20250904

REACTIONS (7)
  - Lipoedema [Recovering/Resolving]
  - Dysphagia [Recovering/Resolving]
  - Swelling of eyelid [Recovering/Resolving]
  - Counterfeit product administered [Not Recovered/Not Resolved]
  - Face oedema [Recovering/Resolving]
  - Periorbital pain [Recovering/Resolving]
  - Dyspnoea [Recovering/Resolving]

NARRATIVE: CASE EVENT DATE: 20250904
